FAERS Safety Report 13277066 (Version 2)
Quarter: 2017Q1

REPORT INFORMATION
  Report Type: Spontaneous
  Country: BR (occurrence: BR)
  Receive Date: 20170228
  Receipt Date: 20170308
  Transmission Date: 20170428
  Serious: Yes (Hospitalization, Other)
  Sender: FDA-Public Use
  Company Number: BR-ASTRAZENECA-2017SE19627

PATIENT
  Age: 629 Month
  Sex: Male

DRUGS (10)
  1. HEMOFOL [Concomitant]
     Route: 058
     Dates: start: 20170206, end: 20170213
  2. MUVINLAX [Concomitant]
     Active Substance: ELECTROLYTES NOS\POLYETHYLENE GLYCOL 3350
     Route: 048
     Dates: start: 20170206, end: 20170213
  3. ATENOL [Suspect]
     Active Substance: ATENOLOL
     Route: 048
  4. SEROQUEL [Suspect]
     Active Substance: QUETIAPINE FUMARATE
     Route: 048
     Dates: start: 20170206, end: 20170213
  5. OXYCONTIN [Concomitant]
     Active Substance: OXYCODONE HYDROCHLORIDE
     Route: 048
     Dates: start: 20170206, end: 20170212
  6. CRESTOR [Suspect]
     Active Substance: ROSUVASTATIN CALCIUM
     Route: 048
  7. FORTAZ [Concomitant]
     Active Substance: CEFTAZIDIME SODIUM
     Route: 042
     Dates: start: 20170206, end: 20170213
  8. OSCAL D [Concomitant]
     Active Substance: CALCIUM CARBONATE\CHOLECALCIFEROL
     Route: 048
     Dates: start: 20170206, end: 20170212
  9. EUTHYROX [Concomitant]
     Active Substance: LEVOTHYROXINE SODIUM
     Dosage: CONTINUOUSLY
  10. NOVALGINA [Concomitant]
     Active Substance: METAMIZOLE SODIUM
     Route: 048
     Dates: start: 20170206, end: 20170212

REACTIONS (5)
  - Metastases to liver [Unknown]
  - Adenocarcinoma gastric [Not Recovered/Not Resolved]
  - Agitation [Recovered/Resolved]
  - Pyrexia [Recovered/Resolved]
  - General physical health deterioration [Recovered/Resolved]

NARRATIVE: CASE EVENT DATE: 201611
